FAERS Safety Report 22526432 (Version 1)
Quarter: 2023Q2

REPORT INFORMATION
  Report Type: Spontaneous
  Country: US (occurrence: US)
  Receive Date: 20230606
  Receipt Date: 20230606
  Transmission Date: 20230722
  Serious: No
  Sender: FDA-Public Use
  Company Number: US-JNJFOC-20230571680

PATIENT
  Sex: Male

DRUGS (2)
  1. CONCERTA [Suspect]
     Active Substance: METHYLPHENIDATE HYDROCHLORIDE
     Indication: Product used for unknown indication
     Route: 048
     Dates: end: 20230526
  2. CONCERTA [Suspect]
     Active Substance: METHYLPHENIDATE HYDROCHLORIDE
     Route: 065
     Dates: start: 20230530

REACTIONS (7)
  - Rash [Unknown]
  - Dyspnoea [Unknown]
  - Insomnia [Unknown]
  - Muscle disorder [Unknown]
  - Wrong technique in product usage process [Unknown]
  - Heart rate increased [Recovering/Resolving]
  - Abnormal sensation in eye [Unknown]

NARRATIVE: CASE EVENT DATE: 20230501
